FAERS Safety Report 8095505-9 (Version None)
Quarter: 2012Q1

REPORT INFORMATION
  Report Type: 
  Country: None (occurrence: None)
  Receive Date: 20120129
  Receipt Date: 20111229
  Transmission Date: 20120608
  Serious: No
  Sender: FDA-Public Use
  Company Number: US-ABBOTT-11P-163-0887731-00

PATIENT
  Age: 31 Year
  Sex: Female

DRUGS (2)
  1. HUMIRA [Suspect]
     Indication: RHEUMATOID ARTHRITIS
  2. HUMIRA [Suspect]

REACTIONS (6)
  - JOINT SWELLING [None]
  - WEIGHT INCREASED [None]
  - DRUG EFFECT DECREASED [None]
  - OEDEMA PERIPHERAL [None]
  - BOWEL MOVEMENT IRREGULARITY [None]
  - MOVEMENT DISORDER [None]
